FAERS Safety Report 16025967 (Version 1)
Quarter: 2019Q1

REPORT INFORMATION
  Report Type: Spontaneous
  Country: US (occurrence: US)
  Receive Date: 20190302
  Receipt Date: 20190302
  Transmission Date: 20190418
  Serious: No
  Sender: FDA-Public Use
  Company Number: US-TEVA-2019-US-1008414

PATIENT
  Sex: Male

DRUGS (1)
  1. GABAPENTIN. [Suspect]
     Active Substance: GABAPENTIN
     Dosage: 3600 MILLIGRAM DAILY;
     Route: 065

REACTIONS (3)
  - Intentional dose omission [Unknown]
  - Intentional product use issue [Unknown]
  - Somnolence [Unknown]
